FAERS Safety Report 26121031 (Version 2)
Quarter: 2025Q4

REPORT INFORMATION
  Report Type: Spontaneous
  Country: EU (occurrence: EU)
  Receive Date: 20251204
  Receipt Date: 20251222
  Transmission Date: 20260118
  Serious: Yes (Other)
  Sender: SANOFI AVENTIS
  Company Number: EU-SA-2025SA360606

PATIENT
  Age: 6 Month
  Sex: Female

DRUGS (2)
  1. BEYFORTUS [Suspect]
     Active Substance: NIRSEVIMAB-ALIP
     Dosage: UNK, 1X
     Dates: start: 20250922, end: 20250922
  2. HEXYON [Concomitant]
     Active Substance: DIPHTHERIA AND TETANUS TOXOIDS AND ACELLULAR PERTUSSIS ADSORBED, INACTIVATED POLIOVIRUS AND HAEMOPHI
     Indication: Immunisation
     Dosage: UNK

REACTIONS (1)
  - Respiratory syncytial virus bronchiolitis [Recovering/Resolving]

NARRATIVE: CASE EVENT DATE: 20251124
